FAERS Safety Report 12542255 (Version 1)
Quarter: 2016Q3

REPORT INFORMATION
  Report Type: Spontaneous
  Country: SI (occurrence: SI)
  Receive Date: 20160708
  Receipt Date: 20160708
  Transmission Date: 20161109
  Serious: Yes (Hospitalization, Other)
  Sender: FDA-Public Use
  Company Number: SI-GILEAD-2016-0222130

PATIENT
  Age: 61 Year
  Sex: Female

DRUGS (5)
  1. HARVONI [Suspect]
     Active Substance: LEDIPASVIR\SOFOSBUVIR
     Indication: HEPATITIS C
     Dosage: 1 DF, QD
     Route: 048
     Dates: start: 20150924, end: 20151224
  2. NOVOMIX [Concomitant]
     Active Substance: INSULIN ASPART
  3. EUTHYROX [Concomitant]
     Active Substance: LEVOTHYROXINE SODIUM
     Dosage: 1 DF, UNK
  4. KEPPRA [Concomitant]
     Active Substance: LEVETIRACETAM
  5. LEVETIRACETAM. [Concomitant]
     Active Substance: LEVETIRACETAM

REACTIONS (1)
  - Hepatocellular carcinoma [Unknown]

NARRATIVE: CASE EVENT DATE: 20160122
